FAERS Safety Report 8287345-2 (Version None)
Quarter: 2012Q2

REPORT INFORMATION
  Report Type: 
  Country: None (occurrence: None)
  Receive Date: 20120411
  Receipt Date: 20120329
  Transmission Date: 20120825
  Serious: Yes (Other)
  Sender: FDA-Public Use
  Company Number: JPI-P-020545

PATIENT
  Age: 33 Year
  Sex: Female

DRUGS (5)
  1. LEVOTHYROXINE SODIUM [Concomitant]
  2. XYREM [Suspect]
     Indication: CATAPLEXY
     Dosage: 4.5 GM (2.25 GM, 2 IN 1 D), ORAL (UNSPECIFIED DOSE CHANGE), ORAL 7.5 GM (3.75 GM, 2 IN 1 D), ORAL
     Route: 048
     Dates: start: 20101229
  3. XYREM [Suspect]
     Indication: CATAPLEXY
     Dosage: 4.5 GM (2.25 GM, 2 IN 1 D), ORAL (UNSPECIFIED DOSE CHANGE), ORAL 7.5 GM (3.75 GM, 2 IN 1 D), ORAL
     Route: 048
     Dates: start: 20101109
  4. ACETAMINOPHEN [Concomitant]
  5. AMPHETAMINE, DEXTROAMPHETAMINE MIXED SALTS [Concomitant]

REACTIONS (7)
  - THYROIDECTOMY [None]
  - TENSION HEADACHE [None]
  - DECREASED APPETITE [None]
  - VOMITING [None]
  - NAUSEA [None]
  - WEIGHT DECREASED [None]
  - INSOMNIA [None]
